FAERS Safety Report 5049335-2 (Version None)
Quarter: 2006Q3

REPORT INFORMATION
  Report Type: 
  Country: None (occurrence: None)
  Receive Date: 20060712
  Receipt Date: 20060529
  Transmission Date: 20061208
  Serious: Yes (Hospitalization)
  Sender: FDA-Public Use
  Company Number: DEWYE657629MAY06

PATIENT
  Sex: Female

DRUGS (3)
  1. ENBREL [Suspect]
     Indication: JUVENILE ARTHRITIS
     Route: 058
     Dates: start: 20000316, end: 20060517
  2. IBUPROFEN [Suspect]
     Route: 048
     Dates: end: 20060227
  3. AZATHIOPRINE [Suspect]
     Route: 048

REACTIONS (3)
  - CIRCULATORY COLLAPSE [None]
  - GASTROENTERITIS ROTAVIRUS [None]
  - LYMPHADENITIS [None]
